FAERS Safety Report 11676189 (Version 2)
Quarter: 2015Q4

REPORT INFORMATION
  Report Type: Spontaneous
  Country: US (occurrence: US)
  Receive Date: 20151028
  Receipt Date: 20151203
  Transmission Date: 20160304
  Serious: No
  Sender: FDA-Public Use
  Company Number: US-SHIRE-US201513205

PATIENT
  Age: 4 Year
  Sex: Male
  Weight: 15.42 kg

DRUGS (3)
  1. VYVANSE [Suspect]
     Active Substance: LISDEXAMFETAMINE DIMESYLATE
     Dosage: 20 MG (TWO 10 MG CAPSULES), 1X/DAY:QD (IN THE MORNING)
     Route: 048
     Dates: start: 20151002, end: 20151015
  2. VYVANSE [Suspect]
     Active Substance: LISDEXAMFETAMINE DIMESYLATE
     Indication: ATTENTION DEFICIT/HYPERACTIVITY DISORDER
     Dosage: 10 MG, 1X/DAY:QD (IN THE MORNING)
     Route: 048
     Dates: start: 20150929, end: 20151001
  3. VYVANSE [Suspect]
     Active Substance: LISDEXAMFETAMINE DIMESYLATE
     Dosage: 20 MG, 1X/DAY:QD (IN THE MORNING)
     Route: 048
     Dates: start: 20151016, end: 20151020

REACTIONS (9)
  - Restlessness [Unknown]
  - Oral administration complication [Recovered/Resolved]
  - Drug administered to patient of inappropriate age [Recovered/Resolved]
  - Drug ineffective [Recovered/Resolved]
  - Product quality issue [Unknown]
  - Psychomotor hyperactivity [Unknown]
  - Initial insomnia [Unknown]
  - Paranoia [Unknown]
  - Flight of ideas [Unknown]

NARRATIVE: CASE EVENT DATE: 2015
